FAERS Safety Report 18270845 (Version 2)
Quarter: 2020Q4

REPORT INFORMATION
  Report Type: Report from Study
  Country: IT (occurrence: IT)
  Receive Date: 20200916
  Receipt Date: 20201120
  Transmission Date: 20210113
  Serious: Yes (Hospitalization)
  Sender: FDA-Public Use
  Company Number: IT-ACCORD-200850

PATIENT
  Age: 87 Year
  Sex: Male

DRUGS (12)
  1. BASSADO [Concomitant]
     Active Substance: DOXYCYCLINE
     Dosage: STRENGTH-100 MG
  2. ZYLORIC [Concomitant]
     Active Substance: ALLOPURINOL
     Dosage: STRENGTH-100 MG
  3. TRITTICO [Concomitant]
     Active Substance: TRAZODONE HYDROCHLORIDE
     Dosage: STRENGTH-50 MG
  4. PANTOPRAZOLE [Concomitant]
     Active Substance: PANTOPRAZOLE
  5. GENERIC DILTIAZEM DOC [Concomitant]
     Dosage: STRENGTH-60 MG
  6. CLOPIXOL [Concomitant]
     Active Substance: ZUCLOPENTHIXOL
     Dosage: STRENGTH-10 MG
  7. FOLINA [Concomitant]
     Dosage: STRENGTH-5 MG
  8. FUROSEMIDE. [Concomitant]
     Active Substance: FUROSEMIDE
  9. CLOPIDOGREL [Suspect]
     Active Substance: CLOPIDOGREL BISULFATE
     Indication: ATRIAL FIBRILLATION
     Route: 048
     Dates: start: 20180720, end: 20200713
  10. COUMADIN [Interacting]
     Active Substance: WARFARIN SODIUM
     Indication: ATRIAL FIBRILLATION
     Dosage: STRENGTH-5 MG
     Route: 048
     Dates: start: 20191225, end: 20200713
  11. SIMVASTATIN. [Concomitant]
     Active Substance: SIMVASTATIN
  12. KANRENOL [Concomitant]
     Active Substance: CANRENOATE POTASSIUM
     Dosage: STRENGTH- 25

REACTIONS (2)
  - Drug interaction [Unknown]
  - Traumatic haemorrhage [Recovering/Resolving]

NARRATIVE: CASE EVENT DATE: 20200713
